FAERS Safety Report 24053407 (Version 1)
Quarter: 2024Q3

REPORT INFORMATION
  Report Type: Spontaneous
  Country: CN (occurrence: None)
  Receive Date: 20240705
  Receipt Date: 20240705
  Transmission Date: 20241016
  Serious: Yes (Other)
  Sender: ASTRAZENECA
  Company Number: 2024A151550

PATIENT
  Age: 26637 Day
  Sex: Male
  Weight: 74 kg

DRUGS (1)
  1. DAPAGLIFLOZIN [Suspect]
     Active Substance: DAPAGLIFLOZIN
     Indication: Diabetes mellitus
     Route: 048
     Dates: start: 20240617, end: 20240618

REACTIONS (1)
  - Blood ketone body increased [Recovering/Resolving]

NARRATIVE: CASE EVENT DATE: 20240619
